FAERS Safety Report 23319112 (Version 1)
Quarter: 2023Q4

REPORT INFORMATION
  Report Type: Other
  Country: GB (occurrence: GB)
  Receive Date: 20231220
  Receipt Date: 20231220
  Transmission Date: 20240110
  Serious: Yes (Other)
  Sender: FDA-Public Use
  Company Number: GB-BRISTOL-MYERS SQUIBB COMPANY-2023-177874

PATIENT

DRUGS (2)
  1. DEXAMETHASONE [Suspect]
     Active Substance: DEXAMETHASONE
     Indication: Plasma cell myeloma
     Dosage: UNK, DOSE : UNAVAILABLE;     FREQ : UNAVAILABLE; ;
     Route: 065
     Dates: start: 202011, end: 202210
  2. LENALIDOMIDE [Suspect]
     Active Substance: LENALIDOMIDE
     Indication: Plasma cell myeloma
     Dosage: UNK, DOSE : UNAVAILABLE;     FREQ : UNAVAILABLE; ;
     Route: 065
     Dates: start: 202011, end: 202210

REACTIONS (1)
  - Plasma cell myeloma [Unknown]
